FAERS Safety Report 6846914-4 (Version None)
Quarter: 2010Q3

REPORT INFORMATION
  Report Type: 
  Country: None (occurrence: None)
  Receive Date: 20100713
  Receipt Date: 20100629
  Transmission Date: 20110219
  Serious: Yes (Congenital Anomaly)
  Sender: FDA-Public Use
  Company Number: B0664336A

PATIENT
  Sex: 0

DRUGS (4)
  1. PYRIMETHAMINE TAB [Suspect]
     Indication: INFECTION PROTOZOAL
     Dosage: /TRANSPLACENTARY
     Route: 064
  2. SULFADIAZINE [Suspect]
     Indication: INFECTION PROTOZOAL
     Dosage: 3 GRAMS PER DAY/ TRANSPLACENTARY
     Route: 064
  3. CALCIUM FOLINATE (FORMULATION UNKNOWN) (CALCIUM FOLINATE) [Suspect]
     Dosage: 15 MG/PER DAY /
  4. SPIRAMYCIN (FORMULATION UNKNOWN)(SPIRAMYCIN) [Suspect]
     Dosage: 3 GRAM(S) PER DAY/

REACTIONS (5)
  - CEREBRAL CALCIFICATION [None]
  - CHOROIDITIS [None]
  - CONGENITAL HYDROCEPHALUS [None]
  - CONVULSION NEONATAL [None]
  - MATERNAL DRUGS AFFECTING FOETUS [None]
